FAERS Safety Report 5087133-4 (Version None)
Quarter: 2006Q3

REPORT INFORMATION
  Report Type: 
  Country: None (occurrence: None)
  Receive Date: 20060821
  Receipt Date: 20060807
  Transmission Date: 20061208
  Serious: Yes (Other)
  Sender: FDA-Public Use
  Company Number: DE-2006-022286

PATIENT

DRUGS (1)
  1. ULTRAVIST 300 [Suspect]
     Indication: DRUG USE FOR UNKNOWN INDICATION
     Dosage: 1 DOSE
     Dates: start: 20060101, end: 20060101

REACTIONS (3)
  - CIRCULATORY COLLAPSE [None]
  - HYPERSENSITIVITY [None]
  - URTICARIA [None]
